FAERS Safety Report 7703428-7 (Version None)
Quarter: 2011Q3

REPORT INFORMATION
  Report Type: 
  Country: None (occurrence: None)
  Receive Date: 20110823
  Receipt Date: 20110823
  Transmission Date: 20111222
  Serious: Yes (Other)
  Sender: FDA-Public Use
  Company Number: None

PATIENT
  Age: 40 Year
  Sex: Female
  Weight: 67.131 kg

DRUGS (1)
  1. LEVOFLOXACIN [Suspect]
     Indication: SKIN INFECTION
     Dosage: 1 TABLET
     Route: 048
     Dates: start: 20110630, end: 20110702

REACTIONS (3)
  - INSOMNIA [None]
  - PAIN IN EXTREMITY [None]
  - PRODUCT QUALITY ISSUE [None]
